FAERS Safety Report 14259131 (Version 1)
Quarter: 2017Q4

REPORT INFORMATION
  Report Type: Spontaneous
  Country: US (occurrence: US)
  Receive Date: 20171207
  Receipt Date: 20171207
  Transmission Date: 20180321
  Serious: Yes (Other)
  Sender: FDA-Public Use
  Company Number: None

PATIENT
  Age: 65 Year
  Sex: Male
  Weight: 105.75 kg

DRUGS (10)
  1. PUMPKIN SEED OIL [Concomitant]
  2. LOW DOSE ASPIRIN [Concomitant]
     Active Substance: ASPIRIN
  3. TYLENOL [Concomitant]
     Active Substance: ACETAMINOPHEN
  4. GINGER. [Concomitant]
     Active Substance: GINGER
  5. TOPICAL PEPPERMINT OIL [Concomitant]
  6. ENTRESTO [Suspect]
     Active Substance: SACUBITRIL\VALSARTAN
     Indication: CARDIAC FAILURE
     Dosage: ?          QUANTITY:1 TABLET(S);?
     Route: 048
     Dates: start: 20171202, end: 20171207
  7. IBUPROPHEN [Concomitant]
     Active Substance: IBUPROFEN
  8. FLOMAX [Concomitant]
     Active Substance: TAMSULOSIN HYDROCHLORIDE
  9. METHOCARBOMAL [Concomitant]
     Active Substance: METHOCARBAMOL
  10. TUMS [Concomitant]
     Active Substance: CALCIUM CARBONATE

REACTIONS (5)
  - Bone pain [None]
  - Myalgia [None]
  - Gait disturbance [None]
  - Dysuria [None]
  - Headache [None]

NARRATIVE: CASE EVENT DATE: 20171206
